FAERS Safety Report 21769445 (Version 4)
Quarter: 2023Q1

REPORT INFORMATION
  Report Type: Report from Study
  Country: IE (occurrence: IE)
  Receive Date: 20221223
  Receipt Date: 20230127
  Transmission Date: 20230417
  Serious: Yes (Hospitalization)
  Sender: FDA-Public Use
  Company Number: IE-AstraZeneca-2022A410551

PATIENT
  Age: 1 Year
  Sex: Female

DRUGS (15)
  1. SYNAGIS [Suspect]
     Active Substance: PALIVIZUMAB
     Indication: Heart disease congenital
     Dosage: AFTER 28 DAYS, (SEASON 2)
     Dates: start: 20221215
  2. SYNAGIS [Suspect]
     Active Substance: PALIVIZUMAB
     Indication: Heart disease congenital
     Dosage: AFTER 28 DAYS, (SEASON 2)
     Dates: start: 20221116
  3. SYNAGIS [Suspect]
     Active Substance: PALIVIZUMAB
     Indication: Heart disease congenital
     Dosage: AFTER 28 DAYS, (SEASON 1)
     Dates: start: 20211221
  4. SYNAGIS [Suspect]
     Active Substance: PALIVIZUMAB
     Indication: Heart disease congenital
     Dosage: AFTER 28 DAYS, (SEASON 1)
     Dates: start: 20211115
  5. SYNAGIS [Suspect]
     Active Substance: PALIVIZUMAB
     Indication: Heart disease congenital
     Dates: start: 20211017
  6. SYNAGIS [Suspect]
     Active Substance: PALIVIZUMAB
     Indication: Heart disease congenital
     Dosage: AFTER 28 DAYS, (SEASON 1)
     Dates: start: 20211010
  7. SYNAGIS [Suspect]
     Active Substance: PALIVIZUMAB
     Dosage: AFTER 28 DAYS, (SEASON 1)
     Dates: start: 20230119
  8. ASPIRIN [Concomitant]
     Active Substance: ASPIRIN
     Dosage: NUMBER OF DOSES REQUIRED 6
  9. LANSOPRAZOLE [Concomitant]
     Active Substance: LANSOPRAZOLE
     Dosage: NUMBER OF DOSES REQUIRED 6
  10. PROPRANOLOL [Concomitant]
     Active Substance: PROPRANOLOL HYDROCHLORIDE
     Dosage: NUMBER OF DOSES REQUIRED 6
  11. SPIRONOLACTONE [Concomitant]
     Active Substance: SPIRONOLACTONE
     Dosage: 9.0MG UNKNOWN
  12. FUROSEMIDE [Concomitant]
     Active Substance: FUROSEMIDE
  13. CAPTOPRIL [Concomitant]
     Active Substance: CAPTOPRIL
  14. LANSOPRAZOLE [Concomitant]
     Active Substance: LANSOPRAZOLE
  15. AZITHROMYCIN [Concomitant]
     Active Substance: AZITHROMYCIN

REACTIONS (7)
  - Rhinovirus infection [Recovered/Resolved]
  - Bronchiolitis [Recovered/Resolved]
  - Post procedural complication [Recovering/Resolving]
  - Dyspnoea [Unknown]
  - Oxygen saturation [Unknown]
  - Aspiration pleural cavity [Unknown]
  - Off label use [Recovering/Resolving]

NARRATIVE: CASE EVENT DATE: 20221201
